FAERS Safety Report 8182240-1 (Version None)
Quarter: 2012Q1

REPORT INFORMATION
  Report Type: 
  Country: None (occurrence: None)
  Receive Date: 20120302
  Receipt Date: 20120223
  Transmission Date: 20120608
  Serious: Yes (Other)
  Sender: FDA-Public Use
  Company Number: PHHY2012GB015555

PATIENT
  Age: 76 Year
  Sex: Male

DRUGS (14)
  1. FYBOGEL [Concomitant]
  2. MORPHINE SULFATE [Concomitant]
  3. PROSTEP [Concomitant]
     Indication: PROSTATE CANCER
     Dosage: 1 DF, ONCE EVERY 03 MONTHS
  4. FRESUBIN [Concomitant]
     Dosage: 5KCAL
  5. SERTRALINE HYDROCHLORIDE [Suspect]
     Dosage: UNKNOWN
  6. FRESUBIN [Concomitant]
     Dosage: 2KCAL
  7. SERTRALINE HYDROCHLORIDE [Suspect]
     Dosage: UNK
     Dates: start: 20120126
  8. RAMIPRIL [Concomitant]
  9. TAMSULOSIN HCL [Concomitant]
  10. ADCAL-D3 [Concomitant]
  11. OMEPRAZOLE [Concomitant]
  12. THIAMINE HCL [Concomitant]
  13. NUTRITION SUPPLEMENTS [Concomitant]
  14. ACETAMINOPHEN [Concomitant]

REACTIONS (1)
  - HYPERKALAEMIA [None]
